FAERS Safety Report 5958320-5 (Version None)
Quarter: 2008Q4

REPORT INFORMATION
  Report Type: 
  Country: None (occurrence: None)
  Receive Date: 20081119
  Receipt Date: 20081113
  Transmission Date: 20090506
  Serious: Yes (Other)
  Sender: FDA-Public Use
  Company Number: JP-MERCK-0811USA02228

PATIENT
  Age: 64 Year
  Sex: Male

DRUGS (3)
  1. PEPCID RPD [Suspect]
     Route: 048
     Dates: start: 20081110, end: 20081113
  2. CORTRIL [Suspect]
     Route: 065
     Dates: start: 20081111
  3. BIO THREE [Suspect]
     Route: 065
     Dates: start: 20081111

REACTIONS (1)
  - BLOOD CREATINE PHOSPHOKINASE INCREASED [None]
